FAERS Safety Report 24859683 (Version 4)
Quarter: 2025Q1

REPORT INFORMATION
  Report Type: Spontaneous
  Country: US (occurrence: US)
  Receive Date: 20250119
  Receipt Date: 20250311
  Transmission Date: 20250409
  Serious: Yes (Other)
  Sender: TRAVERE THERAPEUTICS
  Company Number: US-TRAVERE-2025TVT00023

PATIENT
  Sex: Female

DRUGS (2)
  1. FILSPARI [Suspect]
     Active Substance: SPARSENTAN
     Indication: IgA nephropathy
     Route: 048
  2. FILSPARI [Suspect]
     Active Substance: SPARSENTAN
     Route: 048
     Dates: end: 20250104

REACTIONS (2)
  - Hypotension [Recovered/Resolved]
  - Fatigue [Unknown]
